FAERS Safety Report 10177404 (Version 2)
Quarter: 2014Q2

REPORT INFORMATION
  Report Type: Spontaneous
  Country: FR (occurrence: FR)
  Receive Date: 20140516
  Receipt Date: 20140602
  Transmission Date: 20141212
  Serious: Yes (Life-Threatening, Other)
  Sender: FDA-Public Use
  Company Number: FR-PFIZER INC-2014130201

PATIENT
  Age: 63 Year
  Sex: Male

DRUGS (13)
  1. VANCOMYCIN [Suspect]
     Indication: STAPHYLOCOCCAL INFECTION
     Dosage: 2 G, DAILY
     Route: 042
     Dates: start: 20140315, end: 20140318
  2. VANCOMYCIN [Suspect]
     Dosage: 3 G, DAILY
     Route: 042
     Dates: start: 20140320, end: 20140405
  3. XANAX [Suspect]
     Dosage: 0.25 MG, 1X/DAY
     Route: 048
     Dates: start: 20140330, end: 20140411
  4. CIFLOX [Suspect]
     Indication: STAPHYLOCOCCAL INFECTION
     Dosage: 2 TABLETS OF 500 MG, ONCE DAILY
     Route: 048
     Dates: start: 20140317, end: 20140411
  5. INEXIUM [Suspect]
     Dosage: 40 MG TO 80 MG DAILY
     Route: 048
     Dates: start: 20140303, end: 20140411
  6. AUGMENTIN [Concomitant]
     Dosage: 3 G, 1X/DAY
     Route: 042
     Dates: start: 20140308, end: 20140317
  7. FLAGYL [Concomitant]
     Dosage: 3 TABLETS OF 500 MG, 1X/DAY
     Route: 048
     Dates: start: 20140407, end: 20140411
  8. ZOPICLONE [Concomitant]
     Dosage: 7.5 MG, 1X/DAY
     Route: 048
     Dates: end: 20140325
  9. LOVENOX [Concomitant]
     Dosage: 0.4 ML, 1X/DAY
     Route: 058
     Dates: start: 20140303
  10. ACUPAN [Concomitant]
     Dosage: 20 MG UP TO 80 MG, DAILY
     Route: 042
     Dates: start: 201401, end: 20140318
  11. SMOFKABIVEN [Concomitant]
     Dosage: 1 DF OF 2200 CAL, 1X/DAY
     Route: 042
     Dates: start: 20140303, end: 20140411
  12. DIFFU K [Concomitant]
     Dosage: 2 DF, 1X/DAY
     Route: 048
     Dates: end: 20140411
  13. MOTILIUM [Concomitant]
     Dosage: 1 DF, 3X/DAY
     Route: 048
     Dates: end: 20140411

REACTIONS (7)
  - Multi-organ failure [Recovering/Resolving]
  - Cardiogenic shock [Recovering/Resolving]
  - Haemodynamic instability [Recovering/Resolving]
  - Hepatocellular injury [Recovering/Resolving]
  - Cholestasis [Recovering/Resolving]
  - Drug reaction with eosinophilia and systemic symptoms [Recovering/Resolving]
  - Rash [Recovering/Resolving]
